FAERS Safety Report 8792932 (Version 1)
Quarter: 2012Q4

REPORT INFORMATION
  Report Type: 
  Country: US (occurrence: US)
  Receive Date: 20120918
  Receipt Date: 20120918
  Transmission Date: 20130627
  Serious: No
  Sender: FDA-Public Use
  Company Number: US-ASTRAZENECA-2012SE70921

PATIENT
  Age: 33 Year
  Sex: Female

DRUGS (2)
  1. SYMBICORT [Suspect]
     Indication: ASTHMA
     Dosage: 160/4.5, FREQUENCY UNKNOWN
     Route: 055
  2. PREDNISONE [Concomitant]

REACTIONS (1)
  - Gout [Unknown]
